FAERS Safety Report 6610843-1 (Version None)
Quarter: 2010Q1

REPORT INFORMATION
  Report Type: 
  Country: None (occurrence: None)
  Receive Date: 20100219
  Receipt Date: 20100119
  Transmission Date: 20100710
  Serious: Yes (Other)
  Sender: FDA-Public Use
  Company Number: ALD1-FR-2010-0004

PATIENT
  Age: 40 Year
  Sex: Female

DRUGS (3)
  1. ALDOMET [Suspect]
     Indication: HYPERTENSION
     Dosage: 500 MG, ORAL
     Route: 048
  2. LOXEN (NICARDAPINE HYDROCHLORIDE) (NICARDIPINE HYDROCHLORIDE) [Suspect]
     Indication: HYPERTENSION
     Dosage: (50 MG IN THE MORNING) (20 MG IN THE EVENING), ORAL
     Route: 048
  3. KALEORID (POTASSIUM CHLORIDE) (POTASSIUM CHLORIDE) [Suspect]
     Indication: DRUG USE FOR UNKNOWN INDICATION
     Dosage: 3000 MG (1000 MG, 3 IN 1 D), ORAL
     Route: 048

REACTIONS (3)
  - ABORTED PREGNANCY [None]
  - DRUG EXPOSURE DURING PREGNANCY [None]
  - INTRA-UTERINE DEATH [None]
